FAERS Safety Report 4495150-8 (Version None)
Quarter: 2004Q4

REPORT INFORMATION
  Report Type: 
  Country: None (occurrence: None)
  Receive Date: 20041104
  Receipt Date: 20041018
  Transmission Date: 20050328
  Serious: Yes (Death)
  Sender: FDA-Public Use
  Company Number: 2004-BP-10191RO

PATIENT
  Age: 18 Year
  Sex: Female

DRUGS (1)
  1. MORPHINE SULFATE [Suspect]
     Indication: REFLEX SYMPATHETIC DYSTROPHY
     Dosage: WRONG ROUTE - 450 MG IT X 1 , IT
     Route: 037

REACTIONS (8)
  - ACCIDENTAL OVERDOSE [None]
  - ACIDOSIS [None]
  - HYPOTENSION [None]
  - MEDICATION ERROR [None]
  - MYOCLONUS [None]
  - PAIN IN EXTREMITY [None]
  - TACHYCARDIA [None]
  - VENTRICULAR FIBRILLATION [None]
